FAERS Safety Report 9970161 (Version 1)
Quarter: 2014Q1

REPORT INFORMATION
  Report Type: Spontaneous
  Country: US (occurrence: None)
  Receive Date: 20140127
  Receipt Date: 20140127
  Transmission Date: 20141002
  Serious: Yes (Other)
  Sender: FDA-Public Use
  Company Number: 1167615

PATIENT
  Sex: Female

DRUGS (6)
  1. RITUXAN [Suspect]
     Indication: B-CELL LYMPHOMA
     Dosage: INTRAVENOUS (NOT OTHERWISE SPECIFIED)
     Route: 042
  2. CYCLOPHOSPHAMIDE (CYCLOPHOSPHAMIDE) [Suspect]
     Indication: B-CELL LYMPHOMA
  3. HYDROXYDAUNORUBICIN [Suspect]
     Indication: B-CELL LYMPHOMA
  4. ONCOVIN [Suspect]
     Indication: B-CELL LYMPHOMA
  5. PREDNISONE (PREDNISONE) [Suspect]
     Indication: B-CELL LYMPHOMA
  6. BENDAMUSTINE (BENDAMUSTINE) (BENDAMUSTINE) [Concomitant]

REACTIONS (2)
  - Disease recurrence [None]
  - Treatment failure [None]
